FAERS Safety Report 4956324-2 (Version None)
Quarter: 2006Q1

REPORT INFORMATION
  Report Type: 
  Country: None (occurrence: None)
  Receive Date: 20060329
  Receipt Date: 20060323
  Transmission Date: 20060701
  Serious: Yes (Death, Hospitalization)
  Sender: FDA-Public Use
  Company Number: AR-AVENTIS-200611767EU

PATIENT
  Age: 53 Year
  Sex: Male

DRUGS (3)
  1. ENOXAPARIN SODIUM [Suspect]
     Indication: SURGERY
     Route: 058
     Dates: start: 20060301
  2. ENOXAPARIN SODIUM [Suspect]
     Indication: THROMBOPHLEBITIS
     Route: 058
     Dates: start: 20060301
  3. CLOPIDOGREL [Concomitant]
     Indication: THROMBOPHLEBITIS
     Dates: start: 20060101

REACTIONS (2)
  - CARDIO-RESPIRATORY ARREST [None]
  - HYPOTENSION [None]
